FAERS Safety Report 5386410-7 (Version None)
Quarter: 2007Q3

REPORT INFORMATION
  Report Type: 
  Country: None (occurrence: None)
  Receive Date: 20070710
  Receipt Date: 20070710
  Transmission Date: 20080115
  Serious: Yes (Life-Threatening, Hospitalization)
  Sender: FDA-Public Use
  Company Number: None

PATIENT
  Age: 2 Year
  Sex: Male
  Weight: 10 kg

DRUGS (2)
  1. CISPLATIN [Suspect]
     Indication: NEUROBLASTOMA
     Dosage: 50MG/M2  IV DRIP
     Route: 041
     Dates: start: 20070624, end: 20070628
  2. ETOPOSIDE [Suspect]
     Dosage: 200MG/M2  IV DRIP
     Route: 041
     Dates: start: 20070624, end: 20070628

REACTIONS (7)
  - BLOOD ELECTROLYTES ABNORMAL [None]
  - BLOOD MAGNESIUM DECREASED [None]
  - BLOOD PHOSPHORUS DECREASED [None]
  - DEHYDRATION [None]
  - HYPOVOLAEMIC SHOCK [None]
  - RENAL TUBULAR NECROSIS [None]
  - VOMITING [None]
